FAERS Safety Report 19593626 (Version 1)
Quarter: 2021Q3

REPORT INFORMATION
  Report Type: Spontaneous
  Country: GB (occurrence: GB)
  Receive Date: 20210722
  Receipt Date: 20210722
  Transmission Date: 20211014
  Serious: Yes (Disabling)
  Sender: FDA-Public Use
  Company Number: GB-ACCORD-232278

PATIENT
  Age: 94 Year
  Sex: Female
  Weight: 71 kg

DRUGS (19)
  1. RAMIPRIL. [Suspect]
     Active Substance: RAMIPRIL
     Indication: PRODUCT USED FOR UNKNOWN INDICATION
     Dosage: 2.5MG + 5MG + 10MG
     Dates: start: 20200924
  2. FOLIC ACID. [Concomitant]
     Active Substance: FOLIC ACID
     Dates: start: 20210111
  3. LACTULOSE. [Concomitant]
     Active Substance: LACTULOSE
     Dosage: WHEN REQUIRED
     Dates: start: 20210111, end: 20210625
  4. LEVOTHYROXINE. [Concomitant]
     Active Substance: LEVOTHYROXINE
     Dosage: EACH MORNING BEFORE FOOD. NOT AT SAME TIME.
     Dates: start: 20210111
  5. CHLORAMPHENICOL [Concomitant]
     Active Substance: CHLORAMPHENICOL
     Dosage: DROP TO BOTH EYES FOR 7 DAYS
     Dates: start: 20210702
  6. DICLOFENAC [Concomitant]
     Active Substance: DICLOFENAC
  7. FELODIPINE. [Concomitant]
     Active Substance: FELODIPINE
  8. FENBID [Concomitant]
     Active Substance: IBUPROFEN
     Dosage: APPLY 3 TIMES/DAY TO LOWER BACK, AS NECESSARY
     Dates: start: 20210111
  9. MIRTAZAPINE. [Concomitant]
     Active Substance: MIRTAZAPINE
     Dosage: AT NIGHT
     Dates: start: 20210111
  10. CLOTRIMAZOLE. [Concomitant]
     Active Substance: CLOTRIMAZOLE
     Dosage: APPLY 2?3 TIMES A DAY AND CONTINUE FOR 14 DAYS.
     Dates: start: 20210430, end: 20210528
  11. PARACETAMOL [Concomitant]
     Active Substance: ACETAMINOPHEN
     Indication: ANALGESIC THERAPY
     Dosage: TAKE 1 OR 2 4 TIMES A DAY, AS NECESSARY
     Dates: start: 20210602, end: 20210614
  12. SENNA ALEXANDRINA [Concomitant]
     Active Substance: SENNA LEAF
     Dosage: AT NIGHT
     Dates: start: 20210625
  13. NEFOPAM [Concomitant]
     Active Substance: NEFOPAM
  14. CALCI?D [Concomitant]
     Active Substance: CALCIUM CARBONATE\CHOLECALCIFEROL
     Dates: start: 20210111
  15. EDOXABAN [Concomitant]
     Active Substance: EDOXABAN TOSYLATE
     Dates: start: 20210111
  16. LAXIDO [Concomitant]
     Active Substance: POLYETHYLENE GLYCOL 3350\POTASSIUM CHLORIDE\SODIUM BICARBONATE\SODIUM CHLORIDE
     Dosage: 1 UP TO TWICE A DAY, ORANGE, AS NECESSARY
     Dates: start: 20210602, end: 20210630
  17. ERYTHROMYCIN. [Concomitant]
     Active Substance: ERYTHROMYCIN
  18. TOLTERODINE/TOLTERODINE L?TARTRATE [Concomitant]
     Active Substance: TOLTERODINE TARTRATE
  19. TRAMADOL. [Concomitant]
     Active Substance: TRAMADOL

REACTIONS (1)
  - Hypersensitivity [Recovering/Resolving]

NARRATIVE: CASE EVENT DATE: 20210704
